FAERS Safety Report 11761417 (Version 1)
Quarter: 2015Q4

REPORT INFORMATION
  Report Type: Spontaneous
  Country: US (occurrence: US)
  Receive Date: 20151120
  Receipt Date: 20151120
  Transmission Date: 20160304
  Serious: No
  Sender: FDA-Public Use
  Company Number: US-ELI_LILLY_AND_COMPANY-US201212007889

PATIENT
  Age: 85 Year
  Sex: Male

DRUGS (2)
  1. CALCIUM [Concomitant]
     Active Substance: CALCIUM
  2. FORTEO [Suspect]
     Active Substance: TERIPARATIDE
     Indication: OSTEOPOROSIS
     Dosage: 20 UG, QD
     Dates: start: 20121210, end: 20121214

REACTIONS (4)
  - Nephrolithiasis [Recovered/Resolved]
  - Intentional product misuse [Not Recovered/Not Resolved]
  - Back pain [Unknown]
  - Chromaturia [Unknown]

NARRATIVE: CASE EVENT DATE: 201212
